FAERS Safety Report 10525222 (Version 1)
Quarter: 2014Q4

REPORT INFORMATION
  Report Type: Report from Study
  Country: UG (occurrence: UG)
  Receive Date: 20141017
  Receipt Date: 20141017
  Transmission Date: 20150528
  Serious: Yes (Death)
  Sender: FDA-Public Use
  Company Number: UG-BRISTOL-MYERS SQUIBB COMPANY-21477542

PATIENT
  Age: 42 Year
  Sex: Male

DRUGS (11)
  1. ISONIAZID. [Suspect]
     Active Substance: ISONIAZID
     Indication: TUBERCULOSIS
     Dates: start: 20140903, end: 20140921
  2. RALTEGRAVIR [Suspect]
     Active Substance: RALTEGRAVIR
     Indication: HIV INFECTION
     Dates: start: 20140917, end: 20140921
  3. COTRIMOXAZOLE [Suspect]
     Active Substance: SULFAMETHOXAZOLE\TRIMETHOPRIM
     Dates: start: 20140917, end: 20140921
  4. FLUCONAZOLE. [Suspect]
     Active Substance: FLUCONAZOLE
     Dates: start: 20140917, end: 20140921
  5. EFAVIRENZ [Suspect]
     Active Substance: EFAVIRENZ
     Indication: HIV INFECTION
     Dates: start: 20140917, end: 20140921
  6. EMTRICITABINE [Suspect]
     Active Substance: EMTRICITABINE
     Dates: start: 20140917, end: 20140921
  7. TENOFOVIR [Suspect]
     Active Substance: TENOFOVIR
     Dates: start: 20140917, end: 20140921
  8. RIFAMPICIN [Suspect]
     Active Substance: RIFAMPIN
     Indication: TUBERCULOSIS
     Dates: start: 20140903, end: 20140921
  9. ETHAMBUTOL [Suspect]
     Active Substance: ETHAMBUTOL HYDROCHLORIDE
     Indication: TUBERCULOSIS
     Dates: start: 20140903, end: 20140921
  10. PYRAZINAMIDE. [Suspect]
     Active Substance: PYRAZINAMIDE
     Indication: TUBERCULOSIS
     Dates: start: 20140903, end: 20140921
  11. PLASIL [Suspect]
     Active Substance: METOCLOPRAMIDE HYDROCHLORIDE
     Dates: start: 20140917, end: 20140921

REACTIONS (1)
  - Death [Fatal]

NARRATIVE: CASE EVENT DATE: 20140922
